FAERS Safety Report 25627851 (Version 1)
Quarter: 2025Q3

REPORT INFORMATION
  Report Type: Spontaneous
  Country: GB (occurrence: GB)
  Receive Date: 20250731
  Receipt Date: 20250731
  Transmission Date: 20251020
  Serious: Yes (Life-Threatening, Hospitalization, Other)
  Sender: BAYER HEALTHCARE PHARMACEUTICALS INC.
  Company Number: None

PATIENT
  Age: 41 Year
  Sex: Female

DRUGS (1)
  1. LEVONORGESTREL [Suspect]
     Active Substance: LEVONORGESTREL
     Indication: Contraception
     Dosage: 14?G/DAY
     Route: 015
     Dates: start: 20230613

REACTIONS (4)
  - Ectopic pregnancy with contraceptive device [Recovering/Resolving]
  - Maternal exposure during pregnancy [Unknown]
  - Haemoperitoneum [None]
  - Malaise [None]

NARRATIVE: CASE EVENT DATE: 20250723
